FAERS Safety Report 13768348 (Version 1)
Quarter: 2017Q3

REPORT INFORMATION
  Report Type: Spontaneous
  Country: IT (occurrence: IT)
  Receive Date: 20170719
  Receipt Date: 20170719
  Transmission Date: 20171127
  Serious: Yes (Life-Threatening, Hospitalization)
  Sender: FDA-Public Use
  Company Number: IT-MYLANLABS-2017M1041641

PATIENT

DRUGS (2)
  1. KETOPROFEN. [Suspect]
     Active Substance: KETOPROFEN
     Indication: HEADACHE
     Dosage: 160 MG DAILY
     Route: 048
  2. NIMESULIDE [Interacting]
     Active Substance: NIMESULIDE
     Indication: HEADACHE
     Dosage: 300 MG DAILY
     Route: 048

REACTIONS (3)
  - Overdose [Recovered/Resolved with Sequelae]
  - Gastritis [Recovered/Resolved with Sequelae]
  - Drug interaction [Recovered/Resolved with Sequelae]
